FAERS Safety Report 10764595 (Version 1)
Quarter: 2015Q1

REPORT INFORMATION
  Report Type: Other
  Country: US (occurrence: US)
  Receive Date: 20150205
  Receipt Date: 20150205
  Transmission Date: 20150721
  Serious: Yes (Disabling)
  Sender: FDA-Public Use
  Company Number: US-ACORDA-ACO_103040_2014

PATIENT
  Sex: Male

DRUGS (1)
  1. AMPYRA [Suspect]
     Active Substance: DALFAMPRIDINE
     Indication: PRODUCT USED FOR UNKNOWN INDICATION
     Dosage: UNK,UNK
     Route: 065

REACTIONS (17)
  - Fatigue [Unknown]
  - Impaired reasoning [Unknown]
  - Wheelchair user [Unknown]
  - Tremor [Unknown]
  - Therapy cessation [Unknown]
  - Insomnia [Unknown]
  - Mobility decreased [Unknown]
  - Paranoia [Unknown]
  - General physical health deterioration [Unknown]
  - Depression [Unknown]
  - Pollakiuria [Unknown]
  - Weight increased [Unknown]
  - Pain [Unknown]
  - Decreased appetite [Unknown]
  - Eating disorder symptom [Unknown]
  - Energy increased [Unknown]
  - Disturbance in attention [Unknown]
